FAERS Safety Report 5565313-9 (Version None)
Quarter: 2007Q4

REPORT INFORMATION
  Report Type: 
  Country: None (occurrence: None)
  Receive Date: 20071218
  Receipt Date: 20030225
  Transmission Date: 20080405
  Serious: Yes (Death, Hospitalization)
  Sender: FDA-Public Use
  Company Number: ES-ROCHE-332364

PATIENT
  Age: 70 Year
  Sex: Male

DRUGS (5)
  1. MYCOPHENOLATE MOFETIL [Suspect]
     Route: 065
  2. BASILIXIMAB [Suspect]
     Route: 065
  3. PREDNISONE [Suspect]
     Route: 065
  4. TACROLIMUS [Suspect]
     Route: 065
  5. METHYLPREDNISOLONE [Suspect]
     Route: 065

REACTIONS (4)
  - ACUTE RESPIRATORY FAILURE [None]
  - CYTOMEGALOVIRUS INFECTION [None]
  - LUNG INFECTION [None]
  - SEPSIS [None]
